FAERS Safety Report 7631594-0 (Version None)
Quarter: 2011Q3

REPORT INFORMATION
  Report Type: 
  Country: None (occurrence: None)
  Receive Date: 20110725
  Receipt Date: 20110113
  Transmission Date: 20111222
  Serious: Yes (Other)
  Sender: FDA-Public Use
  Company Number: US-BRISTOL-MYERS SQUIBB COMPANY-15484926

PATIENT
  Sex: Female

DRUGS (5)
  1. COUMADIN [Suspect]
  2. CORTISONE ACETATE [Interacting]
     Dosage: INJECTION
  3. OXYCODONE HCL [Interacting]
  4. KEFLEX [Interacting]
  5. LICORICE [Concomitant]
     Dosage: RED LICORICE

REACTIONS (2)
  - INTERNATIONAL NORMALISED RATIO INCREASED [None]
  - DRUG INTERACTION [None]
